FAERS Safety Report 4891031-6 (Version None)
Quarter: 2006Q1

REPORT INFORMATION
  Report Type: 
  Country: None (occurrence: None)
  Receive Date: 20060125
  Receipt Date: 20060117
  Transmission Date: 20060701
  Serious: Yes (Hospitalization)
  Sender: FDA-Public Use
  Company Number: 2006AP00336

PATIENT
  Age: 24321 Day
  Sex: Female

DRUGS (13)
  1. PROPOFOL [Suspect]
     Indication: GENERAL ANAESTHESIA
  2. ATRACURIUM BESYLATE [Suspect]
     Indication: GENERAL ANAESTHESIA
  3. ATROPINE [Suspect]
     Indication: GENERAL ANAESTHESIA
  4. DEXAMETHASONE TAB [Suspect]
     Indication: GENERAL ANAESTHESIA
     Route: 048
  5. DI-GESIC [Suspect]
     Route: 048
  6. DYNASTAT [Suspect]
     Indication: GENERAL ANAESTHESIA
  7. FENTANYL [Suspect]
     Indication: GENERAL ANAESTHESIA
  8. KEFLEX [Suspect]
     Route: 048
  9. KEFLIN NEUTRAL [Suspect]
     Indication: GENERAL ANAESTHESIA
  10. MIDAZOLAM [Suspect]
     Indication: GENERAL ANAESTHESIA
  11. ONDANSETRON HYDROCHLORIDE DIHYDRATE [Suspect]
     Indication: GENERAL ANAESTHESIA
  12. PARACETAMOL [Suspect]
     Indication: GENERAL ANAESTHESIA
     Route: 042
  13. PROSTIGMIN INJECTION [Suspect]
     Indication: GENERAL ANAESTHESIA

REACTIONS (1)
  - HEPATITIS [None]
